FAERS Safety Report 8580878-0 (Version None)
Quarter: 2012Q3

REPORT INFORMATION
  Report Type: 
  Country: None (occurrence: None)
  Receive Date: 20120809
  Receipt Date: 20120808
  Transmission Date: 20120928
  Serious: Yes (Hospitalization, Other)
  Sender: FDA-Public Use
  Company Number: US-BAYER-2012-042655

PATIENT
  Sex: Female
  Weight: 86.168 kg

DRUGS (11)
  1. BETASERON [Suspect]
     Indication: PRODUCT USED FOR UNKNOWN INDICATION
     Dosage: 0.3 MG, QOD
     Route: 058
  2. CLONIDINE [Concomitant]
     Dosage: 0.1 MG, UNK
  3. GABAPENTIN [Concomitant]
     Dosage: 300 MG, UNK
  4. DIAZEPAM [Concomitant]
     Dosage: 5 MG, UNK
  5. DIVALPROEX SODIUM [Concomitant]
     Dosage: 500 MG ER, UNK
  6. FLUOXETINE HCL [Concomitant]
     Dosage: 20 MG, UNK
  7. HYDROCODONE BITARTRATE AND ACETAMINOPHEN [Concomitant]
  8. AMLODIPINE [Concomitant]
     Dosage: 5 MG, UNK
  9. LYRICA [Concomitant]
     Dosage: 100 MG, UNK
  10. PANTOPRAZOLE [Concomitant]
     Dosage: 40 MG, UNK
  11. OTHER ANTIDEPRESSANTS [Concomitant]
     Dosage: 20 MG, UNK

REACTIONS (2)
  - NEPHROLITHIASIS [None]
  - FALL [None]
